FAERS Safety Report 15407915 (Version 3)
Quarter: 2018Q4

REPORT INFORMATION
  Report Type: Report from Study
  Country: US (occurrence: US)
  Receive Date: 20180920
  Receipt Date: 20181207
  Transmission Date: 20190204
  Serious: Yes (Hospitalization)
  Sender: FDA-Public Use
  Company Number: US-JNJFOC-20180911064

PATIENT
  Age: 82 Year
  Sex: Male

DRUGS (15)
  1. LASIX [Concomitant]
     Active Substance: FUROSEMIDE
  2. VITAMIN B12 [Concomitant]
     Active Substance: CYANOCOBALAMIN
  3. HYDROCHLOROTHIAZIDE W/LISINOPRIL [Concomitant]
     Active Substance: HYDROCHLOROTHIAZIDE\LISINOPRIL
  4. EX-LAX REGULAR STRENGTH STIMULANT LAXATIVE [Concomitant]
     Active Substance: SENNOSIDES
  5. RITUXAN [Concomitant]
     Active Substance: RITUXIMAB
  6. VITAMIN D [Concomitant]
     Active Substance: CHOLECALCIFEROL
  7. COREG [Concomitant]
     Active Substance: CARVEDILOL
  8. IMBRUVICA [Suspect]
     Active Substance: IBRUTINIB
     Indication: LYMPHOID LEUKAEMIA (IN REMISSION)
     Dosage: 420 MG, QD
     Route: 048
     Dates: start: 20180505
  9. IMBRUVICA [Suspect]
     Active Substance: IBRUTINIB
     Indication: LYMPHOID LEUKAEMIA (IN REMISSION)
     Route: 048
     Dates: start: 20180531, end: 2018
  10. IMBRUVICA [Suspect]
     Active Substance: IBRUTINIB
     Indication: CHRONIC LYMPHOCYTIC LEUKAEMIA
     Dosage: 420 MG, QD
     Route: 048
     Dates: start: 20180505
  11. STOOL SOFTENER (DOCUSATE) [Concomitant]
     Active Substance: DOCUSATE
  12. LOSARTAN. [Concomitant]
     Active Substance: LOSARTAN
  13. AMLODIPINE [Concomitant]
     Active Substance: AMLODIPINE BESYLATE
  14. COUMADIN [Concomitant]
     Active Substance: WARFARIN SODIUM
  15. IMBRUVICA [Suspect]
     Active Substance: IBRUTINIB
     Indication: CHRONIC LYMPHOCYTIC LEUKAEMIA
     Route: 048
     Dates: start: 20180531, end: 2018

REACTIONS (5)
  - Cardiac failure congestive [Unknown]
  - Pneumonia [Unknown]
  - Drug ineffective [Unknown]
  - White blood cell count decreased [Unknown]
  - Atrial fibrillation [Not Recovered/Not Resolved]

NARRATIVE: CASE EVENT DATE: 20180902
